FAERS Safety Report 9943315 (Version 3)
Quarter: 2014Q2

REPORT INFORMATION
  Report Type: Spontaneous
  Country: FR (occurrence: FR)
  Receive Date: 20140303
  Receipt Date: 20140403
  Transmission Date: 20141212
  Serious: Yes (Death, Life-Threatening, Hospitalization)
  Sender: FDA-Public Use
  Company Number: FR-ASTRAZENECA-2014SE14603

PATIENT
  Age: 28883 Day
  Sex: Male
  Weight: 74 kg

DRUGS (7)
  1. XEROQUEL [Suspect]
     Indication: MAJOR DEPRESSION
     Route: 048
     Dates: start: 20140209, end: 20140213
  2. XEROQUEL [Suspect]
     Indication: MAJOR DEPRESSION
     Route: 048
     Dates: start: 20140213
  3. APROVEL [Concomitant]
     Indication: HYPERTENSION
     Route: 048
     Dates: start: 20140212
  4. STILNOX [Concomitant]
     Indication: INSOMNIA
     Dosage: 10 MG (IF NEEDED)
     Route: 048
     Dates: start: 20140209
  5. ABILIFY [Concomitant]
     Indication: MAJOR DEPRESSION
     Route: 048
     Dates: end: 20140209
  6. SEROPLEX [Concomitant]
     Indication: MAJOR DEPRESSION
     Route: 048
     Dates: end: 20140209
  7. TIAPRIDAL [Concomitant]
     Indication: MAJOR DEPRESSION
     Route: 048
     Dates: end: 20140209

REACTIONS (3)
  - Cerebrovascular accident [Fatal]
  - Coma [Not Recovered/Not Resolved]
  - Cardio-respiratory arrest [Fatal]
